FAERS Safety Report 23631645 (Version 7)
Quarter: 2024Q3

REPORT INFORMATION
  Report Type: Spontaneous
  Country: US (occurrence: US)
  Receive Date: 20240314
  Receipt Date: 20240914
  Transmission Date: 20241017
  Serious: Yes (Other)
  Sender: UCB
  Company Number: US-UCBSA-2024012019

PATIENT
  Sex: Female
  Weight: 97.522 kg

DRUGS (2)
  1. CIMZIA [Suspect]
     Active Substance: CERTOLIZUMAB PEGOL
     Indication: Rheumatoid arthritis
     Dosage: 200 MILLIGRAM, EV 2 WEEKS(QOW)
     Route: 058
     Dates: start: 202401
  2. ATORVASTATIN CALCIUM [Concomitant]
     Active Substance: ATORVASTATIN CALCIUM
     Indication: Product used for unknown indication
     Dosage: UNK

REACTIONS (9)
  - Rheumatoid arthritis [Unknown]
  - Cataract [Unknown]
  - Cataract operation [Unknown]
  - Fatigue [Unknown]
  - Oropharyngeal pain [Unknown]
  - Intentional dose omission [Unknown]
  - Product dose omission issue [Unknown]
  - Device difficult to use [Unknown]
  - Product prescribing issue [Unknown]

NARRATIVE: CASE EVENT DATE: 20240101
